FAERS Safety Report 5492967-8 (Version None)
Quarter: 2007Q4

REPORT INFORMATION
  Report Type: 
  Country: None (occurrence: None)
  Receive Date: 20071023
  Receipt Date: 20071018
  Transmission Date: 20080405
  Serious: Yes (Death)
  Sender: FDA-Public Use
  Company Number: BR-NOVOPROD-268546

PATIENT
  Sex: Male
  Weight: 80 kg

DRUGS (7)
  1. NOVOSEVEN [Suspect]
     Indication: TRAUMATIC HAEMORRHAGE
     Dosage: 3 DOSES
     Route: 042
     Dates: start: 20071015, end: 20071015
  2. NOVOSEVEN [Suspect]
     Indication: TRAUMATIC HAEMORRHAGE
     Dosage: 3 DOSES
     Route: 042
     Dates: start: 20071015, end: 20071015
  3. NIASTASE [Suspect]
     Indication: TRAUMATIC HAEMORRHAGE
     Dosage: 3 DOSES
     Route: 042
     Dates: start: 20071015, end: 20071015
  4. NIASTASE [Suspect]
     Indication: TRAUMATIC HAEMORRHAGE
     Dosage: 3 DOSES
     Route: 042
     Dates: start: 20071015, end: 20071015
  5. CEFTRIAXONE [Concomitant]
     Indication: ANTIBIOTIC PROPHYLAXIS
     Dosage: 2 G, UNK
     Route: 042
     Dates: start: 20071015, end: 20071015
  6. METRONIDAZOLE [Concomitant]
     Indication: ANTIBIOTIC PROPHYLAXIS
     Dosage: 1.5 G, UNK
     Route: 042
     Dates: start: 20071015, end: 20071015
  7. NORADRENALINE [Concomitant]
     Indication: BLOOD ANTIDIURETIC HORMONE
     Dosage: 1.8 MG/KG/MIN
     Route: 042
     Dates: start: 20071015, end: 20071015

REACTIONS (2)
  - ABDOMINAL COMPARTMENT SYNDROME [None]
  - COAGULOPATHY [None]
